FAERS Safety Report 24977760 (Version 3)
Quarter: 2025Q1

REPORT INFORMATION
  Report Type: Spontaneous
  Country: JP (occurrence: JP)
  Receive Date: 20250217
  Receipt Date: 20250305
  Transmission Date: 20250409
  Serious: Yes (Other)
  Sender: MERCK SHARP & DOHME LLC
  Company Number: JP-MSD-2411JPN001426J

PATIENT
  Age: 54 Year
  Sex: Male
  Weight: 56.6 kg

DRUGS (7)
  1. PREVYMIS [Suspect]
     Active Substance: LETERMOVIR
     Indication: Antiviral prophylaxis
     Route: 048
     Dates: start: 20230616, end: 20231226
  2. PREVYMIS [Suspect]
     Active Substance: LETERMOVIR
     Indication: Antiviral prophylaxis
     Dosage: STRENGTH 240 MG
     Route: 048
  3. VORICONAZOLE [Interacting]
     Active Substance: VORICONAZOLE
     Indication: Sinusitis aspergillus
     Dosage: DOSE DESCRIPTION : 300 MILLIGRAM, BID?DAILY DOSE : 600 MILLIGRAM
     Route: 048
  4. VORICONAZOLE [Interacting]
     Active Substance: VORICONAZOLE
     Indication: Sinusitis aspergillus
     Dosage: DOSE DESCRIPTION : 200 MILLIGRAM, BID, DAY61-69?DAILY DOSE : 400 MILLIGRAM
     Route: 048
  5. VORICONAZOLE [Interacting]
     Active Substance: VORICONAZOLE
     Indication: Sinusitis aspergillus
     Dosage: DOSE DESCRIPTION : 400 MILLIGRAM, BID, DAY70-83?DAILY DOSE : 800 MILLIGRAM
     Route: 048
  6. VORICONAZOLE [Interacting]
     Active Substance: VORICONAZOLE
     Indication: Sinusitis aspergillus
     Dosage: DOSE DESCRIPTION : 600 MILLIGRAM, BID, DAY84-?DAILY DOSE : 1200 MILLIGRAM
     Route: 048
  7. AMBISOME [Concomitant]
     Active Substance: AMPHOTERICIN B
     Indication: Sinusitis fungal
     Route: 065

REACTIONS (3)
  - Sinusitis aspergillus [Recovered/Resolved]
  - Drug level decreased [Recovering/Resolving]
  - Drug interaction [Unknown]

NARRATIVE: CASE EVENT DATE: 20230705
